FAERS Safety Report 24394205 (Version 2)
Quarter: 2025Q3

REPORT INFORMATION
  Report Type: Report from Study
  Country: US (occurrence: US)
  Receive Date: 20241004
  Receipt Date: 20250828
  Transmission Date: 20251021
  Serious: No
  Sender: BIOGEN
  Company Number: US-BIOGEN-2024BI01284505

PATIENT
  Sex: Female

DRUGS (2)
  1. ZURZUVAE [Suspect]
     Active Substance: ZURANOLONE
     Indication: Perinatal depression
     Route: 050
  2. ZURZUVAE [Suspect]
     Active Substance: ZURANOLONE
     Dosage: ON DAY 3
     Route: 050
     Dates: start: 202409

REACTIONS (5)
  - Brain fog [Unknown]
  - Crying [Unknown]
  - Feeling of despair [Unknown]
  - Depressed level of consciousness [Unknown]
  - Somnolence [Unknown]
